FAERS Safety Report 5750237-4 (Version None)
Quarter: 2008Q2

REPORT INFORMATION
  Report Type: 
  Country: None (occurrence: None)
  Receive Date: 20080523
  Receipt Date: 20080523
  Transmission Date: 20081010
  Serious: No
  Sender: FDA-Public Use
  Company Number: None

PATIENT
  Age: 77 Year
  Sex: Female
  Weight: 43.0917 kg

DRUGS (1)
  1. PROVENTIL [Suspect]
     Indication: EMPHYSEMA
     Dosage: 1-4 DOSES 4 TO 6 HOURS I HAVE USED ALBUTEROL FOR OVER 12 YEARS

REACTIONS (2)
  - DRUG EFFECT DECREASED [None]
  - PHARMACEUTICAL PRODUCT COMPLAINT [None]
